FAERS Safety Report 17367986 (Version 1)
Quarter: 2020Q1

REPORT INFORMATION
  Report Type: Spontaneous
  Country: US (occurrence: US)
  Receive Date: 20200204
  Receipt Date: 20200204
  Transmission Date: 20200409
  Serious: No
  Sender: FDA-Public Use
  Company Number: NVSC2020US028293

PATIENT
  Sex: Male
  Weight: 91.62 kg

DRUGS (23)
  1. XELJANZ [Concomitant]
     Active Substance: TOFACITINIB CITRATE
     Indication: PRODUCT USED FOR UNKNOWN INDICATION
     Dosage: UNK, BID(1/2TABS,STARTED AT 10MG)
     Route: 065
     Dates: start: 20190919
  2. FUROSEMIDE. [Concomitant]
     Active Substance: FUROSEMIDE
     Indication: SWELLING
     Dosage: UNK(2TABS,AM,STARTED AT 10MG)
     Route: 065
     Dates: start: 20190919
  3. NAPROXEN. [Concomitant]
     Active Substance: NAPROXEN
     Indication: ARTHRITIS
     Dosage: UNK, BID(1 TAB,W/MEAL)
     Route: 065
     Dates: start: 20200107
  4. AVICENNA VITAMIN B12 [Concomitant]
     Indication: PRODUCT USED FOR UNKNOWN INDICATION
     Dosage: UNK(GUMMIES 3 AFTER BREAKFAST)
     Route: 065
  5. TYLENOL [Concomitant]
     Active Substance: ACETAMINOPHEN
     Indication: PRODUCT USED FOR UNKNOWN INDICATION
     Dosage: UNK(8HR,CAPLETS(3)
     Route: 065
  6. CALMOSEPTINE [Concomitant]
     Active Substance: MENTHOL\ZINC OXIDE
     Indication: PRODUCT USED FOR UNKNOWN INDICATION
     Dosage: UNK(W/MENTHOL)
     Route: 065
  7. DESITIN [Concomitant]
     Active Substance: ZINC OXIDE
     Indication: RECTAL HAEMORRHAGE
     Dosage: UNK, PRN
     Route: 065
  8. LEVOTHYROXINE. [Concomitant]
     Active Substance: LEVOTHYROXINE
     Indication: PRODUCT USED FOR UNKNOWN INDICATION
     Dosage: QD(EARLY A.M ON EMPTY STOMACH)
     Route: 065
  9. NEXIUM [Concomitant]
     Active Substance: ESOMEPRAZOLE MAGNESIUM
     Indication: PRODUCT USED FOR UNKNOWN INDICATION
     Dosage: UNK, QD(A.MBEFORE BREAKFAST)
     Route: 065
  10. PROBIOTIC ACIDOPHILUS [Concomitant]
     Active Substance: LACTOBACILLUS ACIDOPHILUS
     Indication: PRODUCT USED FOR UNKNOWN INDICATION
     Dosage: UNK(2 TABS DAILY,CHEWABLE)
     Route: 065
  11. CENTRUM [Concomitant]
     Active Substance: VITAMINS
     Indication: PRODUCT USED FOR UNKNOWN INDICATION
     Dosage: UNK(1TAB AFTER BREAKFAST)
     Route: 065
  12. ASCORBIC ACID (VITAMIN C), INCL. COMBINATIONS [Concomitant]
     Indication: PRODUCT USED FOR UNKNOWN INDICATION
     Dosage: UNK(1 AFTER BREAKFAST)
     Route: 065
  13. LEVSIN [Concomitant]
     Active Substance: HYOSCYAMINE SULFATE
     Indication: MUSCLE SPASMS
     Dosage: UNK, PRN
     Route: 065
  14. PREDNISONE. [Concomitant]
     Active Substance: PREDNISONE
     Dosage: UNK(DOASGE VARIED DURING PERIOD)
     Route: 065
     Dates: end: 20191212
  15. FLUOXETINE [Concomitant]
     Active Substance: FLUOXETINE HYDROCHLORIDE
     Indication: ANXIETY
     Dosage: UNK, QD(@BEDTIME
     Route: 065
     Dates: start: 20190310
  16. FINASTERIDE. [Concomitant]
     Active Substance: FINASTERIDE
     Indication: PRODUCT USED FOR UNKNOWN INDICATION
     Dosage: UNK(1@BEDTIME,REPLACED DUTASTERIDE)
     Route: 065
  17. TAMSULOSIN [Concomitant]
     Active Substance: TAMSULOSIN
     Indication: PRODUCT USED FOR UNKNOWN INDICATION
     Dosage: UNK(FLOMAX,1@BEDTIME)
     Route: 065
  18. PREDNISONE. [Concomitant]
     Active Substance: PREDNISONE
     Indication: PRODUCT USED FOR UNKNOWN INDICATION
     Dosage: UNK(W/BREAKFAST,STARTED@40MG)
     Route: 065
     Dates: start: 20180915
  19. LOSARTAN POTASSIUM. [Suspect]
     Active Substance: LOSARTAN POTASSIUM
     Indication: PRODUCT USED FOR UNKNOWN INDICATION
     Route: 065
  20. PROBIOTIC [Concomitant]
     Active Substance: PROBIOTICS NOS
     Indication: PRODUCT USED FOR UNKNOWN INDICATION
     Dosage: UNK(2 CAP,AT BREAKFAST)
     Route: 065
  21. TURMERIC [Concomitant]
     Active Substance: HERBALS\TURMERIC
     Indication: PRODUCT USED FOR UNKNOWN INDICATION
     Dosage: UNK(@BREAKFAST)
     Route: 065
  22. FERROUS SULFATE. [Concomitant]
     Active Substance: FERROUS SULFATE
     Indication: PRODUCT USED FOR UNKNOWN INDICATION
     Dosage: UNK, QD
     Route: 065
     Dates: start: 20200124
  23. LACTAID FAST ACT [Concomitant]
     Active Substance: LACTASE
     Indication: PRODUCT USED FOR UNKNOWN INDICATION
     Dosage: UNK(TAKEN ONLY PRIOR TO DAIRY)
     Route: 065

REACTIONS (1)
  - Diarrhoea [Unknown]
